FAERS Safety Report 7509149-8 (Version None)
Quarter: 2011Q2

REPORT INFORMATION
  Report Type: 
  Country: None (occurrence: None)
  Receive Date: 20110527
  Receipt Date: 20110524
  Transmission Date: 20111010
  Serious: Yes (Congenital Anomaly, Other)
  Sender: FDA-Public Use
  Company Number: US-ROXANE LABORATORIES, INC.-2011-RO-00711RO

PATIENT
  Sex: Male

DRUGS (3)
  1. PROPRANOLOL [Suspect]
     Indication: PREOPERATIVE CARE
  2. METHOTREXATE [Suspect]
     Indication: DRUG EXPOSURE DURING PREGNANCY
     Route: 064
  3. PHENYLEPHRINE HCL [Suspect]
     Indication: PREOPERATIVE CARE

REACTIONS (14)
  - CEREBRAL SMALL VESSEL ISCHAEMIC DISEASE [None]
  - CHYLOTHORAX [None]
  - CONGENITAL GENITOURINARY ABNORMALITY [None]
  - DEAFNESS [None]
  - FALLOT'S TETRALOGY [None]
  - MULTIPLE CONGENITAL ABNORMALITIES [None]
  - BRONCHOPULMONARY DYSPLASIA [None]
  - DYSPHAGIA [None]
  - RETINOPATHY OF PREMATURITY [None]
  - RENAL FAILURE [None]
  - PERICARDIAL EFFUSION [None]
  - CONVULSION [None]
  - PREMATURE BABY [None]
  - INGUINAL HERNIA [None]
